FAERS Safety Report 9228834 (Version 1)
Quarter: 2013Q2

REPORT INFORMATION
  Report Type: Spontaneous
  Country: GB (occurrence: GB)
  Receive Date: 20130412
  Receipt Date: 20130412
  Transmission Date: 20140414
  Serious: Yes (Death)
  Sender: FDA-Public Use
  Company Number: GB-ROCHE-1214008

PATIENT
  Age: 21 Year
  Sex: Female

DRUGS (6)
  1. ALTEPLASE [Suspect]
     Indication: VENOOCCLUSIVE LIVER DISEASE
     Route: 065
     Dates: start: 1994
  2. ADRIAMYCIN [Suspect]
     Indication: PRODUCT USED FOR UNKNOWN INDICATION
     Route: 065
  3. ALL-TRANS-RETINOIC ACID (ATRA) [Concomitant]
     Indication: PREMEDICATION
  4. DAUNORUBICIN [Concomitant]
     Indication: PREMEDICATION
  5. CYTARABINE [Concomitant]
     Indication: PREMEDICATION
  6. ETOPOSIDE [Concomitant]
     Indication: PREMEDICATION

REACTIONS (6)
  - Drug ineffective [Fatal]
  - Cardiac perforation [Fatal]
  - General physical health deterioration [Fatal]
  - Renal failure [Fatal]
  - Multi-organ failure [Fatal]
  - Congestive cardiomyopathy [Fatal]
